FAERS Safety Report 4513030-6 (Version None)
Quarter: 2004Q4

REPORT INFORMATION
  Report Type: 
  Country: None (occurrence: None)
  Receive Date: 20041130
  Receipt Date: 20041118
  Transmission Date: 20050328
  Serious: Yes (Hospitalization, Other)
  Sender: FDA-Public Use
  Company Number: PT-JNJFOC-20041007848

PATIENT
  Sex: Male
  Weight: 16 kg

DRUGS (3)
  1. TOPAMAX [Suspect]
     Indication: EPILEPSY
     Route: 065
  2. VALPROATE SODIUM [Suspect]
     Route: 049
  3. CLONAZEPAM [Concomitant]
     Route: 049

REACTIONS (6)
  - ASTHENIA [None]
  - ATAXIA [None]
  - COORDINATION ABNORMAL [None]
  - HYPOTONIA [None]
  - METASTASES TO CENTRAL NERVOUS SYSTEM [None]
  - METASTASES TO MENINGES [None]
